FAERS Safety Report 4911085-8 (Version None)
Quarter: 2006Q1

REPORT INFORMATION
  Report Type: 
  Country: None (occurrence: None)
  Receive Date: 20060209
  Receipt Date: 20060123
  Transmission Date: 20060701
  Serious: Yes (Hospitalization)
  Sender: FDA-Public Use
  Company Number: FR200601003562

PATIENT
  Age: 1 Day
  Sex: Male
  Weight: 2.9 kg

DRUGS (3)
  1. HUMALOG [Suspect]
     Dosage: TRANSPLACENTAL
     Route: 064
     Dates: start: 20040328, end: 20041119
  2. VELOSULIN [Concomitant]
  3. EFFEXOR [Concomitant]

REACTIONS (10)
  - APGAR SCORE LOW [None]
  - CAESAREAN SECTION [None]
  - DRUG EXPOSURE DURING PREGNANCY [None]
  - FOETAL HEART RATE DISORDER [None]
  - HYPOGLYCAEMIA NEONATAL [None]
  - JAUNDICE NEONATAL [None]
  - MATERNAL CONDITION AFFECTING FOETUS [None]
  - MATERNAL HYPERTENSION AFFECTING FOETUS [None]
  - NEONATAL RESPIRATORY DISTRESS SYNDROME [None]
  - PREMATURE BABY [None]
